FAERS Safety Report 5201119-8 (Version None)
Quarter: 2007Q1

REPORT INFORMATION
  Report Type: 
  Country: None (occurrence: None)
  Receive Date: 20070108
  Receipt Date: 20070102
  Transmission Date: 20070707
  Serious: Yes (Hospitalization)
  Sender: FDA-Public Use
  Company Number: CL-BRISTOL-MYERS SQUIBB COMPANY-13629068

PATIENT
  Age: 58 Year
  Sex: Female

DRUGS (5)
  1. CISPLATIN [Suspect]
     Indication: GASTRIC CANCER
     Route: 041
     Dates: start: 20061213, end: 20061213
  2. FLUOROURACIL [Suspect]
     Indication: GASTRIC CANCER
     Dosage: DAYS 1-5 EVERY 4 WEEKS
     Route: 041
     Dates: start: 20061216, end: 20061216
  3. CONFER [Concomitant]
     Indication: ANAEMIA
     Route: 048
     Dates: start: 20061004
  4. FOLIC ACID [Concomitant]
     Indication: ANAEMIA
     Dates: start: 20061001
  5. DOMPERIDONE [Concomitant]
     Indication: NAUSEA
     Dates: start: 20061012

REACTIONS (2)
  - DEHYDRATION [None]
  - MUCOSAL INFLAMMATION [None]
